FAERS Safety Report 7610364-3 (Version None)
Quarter: 2011Q3

REPORT INFORMATION
  Report Type: 
  Country: None (occurrence: None)
  Receive Date: 20110715
  Receipt Date: 20110701
  Transmission Date: 20111222
  Serious: Yes (Life-Threatening, Hospitalization)
  Sender: FDA-Public Use
  Company Number: GB-RANBAXY-2011R1-41488

PATIENT
  Age: 53 Year
  Sex: Male
  Weight: 109 kg

DRUGS (3)
  1. CEPHALEXIN [Suspect]
     Indication: URINARY TRACT INFECTION
     Dosage: 500 MG, UNK
     Route: 048
     Dates: start: 20101112, end: 20101112
  2. BENDROFLUMETHIAZIDE [Concomitant]
     Indication: HYPERTENSION
     Dosage: 2.5 MG, UNK
     Route: 048
     Dates: start: 20020101
  3. RAMIPRIL [Concomitant]
     Indication: HYPERTENSION
     Dosage: 5 MG, UNK
     Route: 048
     Dates: start: 20030101

REACTIONS (1)
  - ANAPHYLACTIC SHOCK [None]
